FAERS Safety Report 25433192 (Version 1)
Quarter: 2025Q2

REPORT INFORMATION
  Report Type: Report from Study
  Country: ES (occurrence: None)
  Receive Date: 20250613
  Receipt Date: 20250613
  Transmission Date: 20250717
  Serious: Yes (Other)
  Sender: ENCUBE ETHICALS
  Company Number: ES-Encube-001927

PATIENT
  Age: 46 Year
  Sex: Male

DRUGS (6)
  1. ESTRADIOL [Suspect]
     Active Substance: ESTRADIOL
     Indication: Feminisation acquired
     Route: 062
  2. ESTRADIOL [Suspect]
     Active Substance: ESTRADIOL
     Indication: Feminisation acquired
     Route: 062
  3. CYPROTERONE ACETATE [Suspect]
     Active Substance: CYPROTERONE ACETATE
     Indication: Feminisation acquired
  4. CYPROTERONE ACETATE [Suspect]
     Active Substance: CYPROTERONE ACETATE
     Indication: Feminisation acquired
  5. ACECLOFENAC [Concomitant]
     Active Substance: ACECLOFENAC
  6. DESMOPRESSIN [Concomitant]
     Active Substance: DESMOPRESSIN
     Dosage: INTRANASAL

REACTIONS (11)
  - Off label use [Unknown]
  - Meningioma [Recovering/Resolving]
  - Visual impairment [Recovering/Resolving]
  - Hyponatraemia [Recovering/Resolving]
  - Depressed level of consciousness [Recovering/Resolving]
  - Lethargy [Recovering/Resolving]
  - Optic atrophy [Recovering/Resolving]
  - Nausea [Recovering/Resolving]
  - Vomiting [Recovering/Resolving]
  - Headache [Recovering/Resolving]
  - Dizziness [Recovering/Resolving]
